FAERS Safety Report 10207205 (Version 1)
Quarter: 2014Q2

REPORT INFORMATION
  Report Type: Spontaneous
  Country: US (occurrence: None)
  Receive Date: 20140528
  Receipt Date: 20140528
  Transmission Date: 20141212
  Serious: Yes (Other)
  Sender: FDA-Public Use
  Company Number: None

PATIENT
  Age: 60 Year
  Sex: Female

DRUGS (1)
  1. COPAXONE 40 MG [Suspect]
     Indication: MULTIPLE SCLEROSIS
     Dosage: SYRING TIW SUBCUTANEOUS
     Route: 058

REACTIONS (3)
  - Chest pain [None]
  - Flushing [None]
  - Palpitations [None]
